FAERS Safety Report 20966960 (Version 2)
Quarter: 2022Q2

REPORT INFORMATION
  Report Type: Spontaneous
  Country: IT (occurrence: IT)
  Receive Date: 20220616
  Receipt Date: 20220627
  Transmission Date: 20220720
  Serious: Yes (Hospitalization)
  Sender: FDA-Public Use
  Company Number: IT-MYLANLABS-2022M1044970

PATIENT
  Age: 82 Year
  Sex: Male

DRUGS (2)
  1. ARIXTRA [Suspect]
     Active Substance: FONDAPARINUX SODIUM
     Indication: Product used for unknown indication
     Dosage: 1 DOSAGE FORM, QD, (1 INJECTION PER DAY FOR 20 DAYS)
     Route: 058
  2. Pravidel [Concomitant]
     Indication: Product used for unknown indication
     Dosage: UNK
     Route: 048

REACTIONS (2)
  - Malaise [Unknown]
  - Intentional product use issue [Unknown]
